FAERS Safety Report 23768495 (Version 1)
Quarter: 2024Q2

REPORT INFORMATION
  Report Type: Spontaneous
  Country: DE (occurrence: DE)
  Receive Date: 20240422
  Receipt Date: 20240422
  Transmission Date: 20240716
  Serious: Yes (Life-Threatening, Hospitalization)
  Sender: FDA-Public Use
  Company Number: DE-EMA-DD-20200303-agrahari_P-150727

PATIENT
  Age: 63 Year
  Sex: Female
  Weight: 93 kg

DRUGS (12)
  1. LEFLUNOMIDE [Suspect]
     Active Substance: LEFLUNOMIDE
     Indication: Rheumatoid arthritis
     Dosage: 20 MG, QD
     Route: 065
     Dates: start: 2014
  2. METHOTREXATE [Suspect]
     Active Substance: METHOTREXATE
     Indication: Rheumatoid arthritis
     Dosage: 15 MG WEEKLY
     Route: 065
     Dates: start: 2012
  3. FOLIC ACID [Concomitant]
     Active Substance: FOLIC ACID
     Indication: Rheumatoid arthritis
     Dosage: 5 MG  THE DAY AFTER THE METHOTREXATE ADMINISTRATION
     Route: 065
  4. FUROSEMIDE [Concomitant]
     Active Substance: FUROSEMIDE
     Indication: Product used for unknown indication
     Dosage: 40 MG  QD, FOR 4 WEEKS
     Route: 065
  5. IRON [Concomitant]
     Active Substance: IRON
     Indication: Mineral supplementation
     Dosage: UNK
     Route: 065
  6. IRON [Concomitant]
     Active Substance: IRON
     Dosage: UNK
     Route: 065
  7. IRON [Concomitant]
     Active Substance: IRON
     Dosage: UNK
     Route: 065
  8. METAMIZOLE [Concomitant]
     Active Substance: METAMIZOLE
     Indication: Analgesic therapy
     Dosage: UNK
     Route: 065
  9. PANTOPRAZOLE [Concomitant]
     Active Substance: PANTOPRAZOLE
     Indication: Chronic gastritis
     Dosage: 40 MG TWICE DAILY
     Route: 065
  10. PANTOPRAZOLE [Concomitant]
     Active Substance: PANTOPRAZOLE
     Dosage: 40 MG TWICE DAILY
     Route: 065
  11. PANTOPRAZOLE [Concomitant]
     Active Substance: PANTOPRAZOLE
     Dosage: 40 MG TWICE DAILY
     Route: 065
  12. SIMVASTATIN [Concomitant]
     Active Substance: SIMVASTATIN
     Indication: Hyperlipidaemia
     Dosage: 20 MG, QD
     Route: 065

REACTIONS (15)
  - Drug interaction [Unknown]
  - Respiratory alkalosis [Recovered/Resolved]
  - Immunosuppressant drug level increased [Unknown]
  - Hypoalbuminaemia [Recovered/Resolved]
  - Thrombocytopenia [Recovered/Resolved]
  - Hypokalaemia [Recovered/Resolved]
  - Coombs negative haemolytic anaemia [Recovered/Resolved]
  - Acute kidney injury [Recovered/Resolved]
  - Metabolic alkalosis [Recovered/Resolved]
  - Drug-induced liver injury [Recovered/Resolved]
  - Hypovolaemia [Recovered/Resolved]
  - Hepatic cirrhosis [Recovered/Resolved]
  - Acute hepatic failure [Recovered/Resolved]
  - Thrombotic microangiopathy [Recovered/Resolved]
  - Overdose [Recovered/Resolved]
